FAERS Safety Report 5604539-2 (Version None)
Quarter: 2008Q1

REPORT INFORMATION
  Report Type: 
  Country: None (occurrence: None)
  Receive Date: 20080124
  Receipt Date: 20080124
  Transmission Date: 20080703
  Serious: No
  Sender: FDA-Public Use
  Company Number: None

PATIENT
  Sex: Female
  Weight: 79.3795 kg

DRUGS (2)
  1. ALLERGY + CONGESTION RELIEF  24 HOUR GOOD NEIGHBOR PHARMACY LORATIADIN [Suspect]
     Indication: SEASONAL ALLERGY
     Dosage: 10MG ONCE DAILY PO
     Route: 048
     Dates: start: 20080113, end: 20080118
  2. . [Concomitant]

REACTIONS (2)
  - ALTERED STATE OF CONSCIOUSNESS [None]
  - PHARMACEUTICAL PRODUCT COMPLAINT [None]
